FAERS Safety Report 20374844 (Version 1)
Quarter: 2022Q1

REPORT INFORMATION
  Report Type: Spontaneous
  Country: US (occurrence: None)
  Receive Date: 20220124
  Receipt Date: 20220124
  Transmission Date: 20220423
  Serious: Yes (unspecified)
  Sender: FDA-Public Use
  Company Number: None

PATIENT
  Age: 51 Year
  Sex: Female
  Weight: 72 kg

DRUGS (2)
  1. LOTEPREDNOL [Suspect]
     Active Substance: LOTEPREDNOL
     Dosage: FREQUENCY : DAILY;?
     Route: 031
     Dates: start: 20170401, end: 20170414
  2. PREDNISOLONE [Suspect]
     Active Substance: PREDNISOLONE
     Dosage: FREQUENCY : DAILY;?
     Route: 031
     Dates: start: 201704, end: 20170421

REACTIONS (7)
  - Erythema [None]
  - Pruritus [None]
  - Pain [None]
  - Vision blurred [None]
  - Eye pain [None]
  - Eye pruritus [None]
  - Ocular hyperaemia [None]

NARRATIVE: CASE EVENT DATE: 20170401
